FAERS Safety Report 7564604-X (Version None)
Quarter: 2011Q2

REPORT INFORMATION
  Report Type: 
  Country: None (occurrence: None)
  Receive Date: 20110622
  Receipt Date: 20100827
  Transmission Date: 20111010
  Serious: Yes (Other)
  Sender: FDA-Public Use
  Company Number: US-MYLANLABS-2010S1011612

PATIENT
  Age: 50 Year
  Sex: Male
  Weight: 66.68 kg

DRUGS (6)
  1. CLOZAPINE [Suspect]
     Route: 048
  2. ARTANE [Concomitant]
     Route: 048
  3. LEXAPRO [Concomitant]
     Dosage: WITH FOOD
     Route: 048
  4. CLOZAPINE [Suspect]
     Indication: PSYCHOTIC DISORDER
     Route: 048
     Dates: start: 20090201, end: 20100707
  5. DEPAKOTE ER [Concomitant]
     Route: 048
  6. STELAZINE [Concomitant]
     Route: 048

REACTIONS (2)
  - GRANULOCYTOPENIA [None]
  - LEUKOPENIA [None]
